FAERS Safety Report 5980803-2 (Version None)
Quarter: 2008Q4

REPORT INFORMATION
  Report Type: 
  Country: None (occurrence: None)
  Receive Date: 20081205
  Receipt Date: 20080506
  Transmission Date: 20090506
  Serious: No
  Sender: FDA-Public Use
  Company Number: A0726455A

PATIENT
  Age: 45 Year
  Sex: Female

DRUGS (2)
  1. COMMIT [Suspect]
     Dates: start: 20080319, end: 20080504
  2. COMMIT [Suspect]
     Dates: start: 20080505

REACTIONS (4)
  - DYSPEPSIA [None]
  - HICCUPS [None]
  - INTENTIONAL DRUG MISUSE [None]
  - NICOTINE DEPENDENCE [None]
